FAERS Safety Report 6940223-0 (Version None)
Quarter: 2010Q3

REPORT INFORMATION
  Report Type: 
  Country: None (occurrence: None)
  Receive Date: 20100817
  Receipt Date: 20100330
  Transmission Date: 20110219
  Serious: Yes (Other)
  Sender: FDA-Public Use
  Company Number: 20108359

PATIENT
  Sex: Female

DRUGS (10)
  1. LIORESAL [Suspect]
     Indication: MUSCLE SPASTICITY
     Dosage: 725 MCG, DAILY, INTRATHECAL
     Route: 037
  2. ULTRAM [Concomitant]
  3. REGLAN [Concomitant]
  4. MAALOX [Concomitant]
  5. CLARITIN [Concomitant]
  6. GLYCERIN SUPPOS [Concomitant]
  7. MILK OF MAGNESIA TAB [Concomitant]
  8. FLEXERIL [Concomitant]
  9. SUDAFED 12 HOUR [Concomitant]
  10. SALINE NASAL [Concomitant]

REACTIONS (5)
  - CONDITION AGGRAVATED [None]
  - MENTAL STATUS CHANGES [None]
  - MUSCLE SPASTICITY [None]
  - URINARY TRACT INFECTION [None]
  - WITHDRAWAL SYNDROME [None]
